FAERS Safety Report 9249374 (Version 3)
Quarter: 2013Q2

REPORT INFORMATION
  Report Type: Spontaneous
  Country: ES (occurrence: ES)
  Receive Date: 20130423
  Receipt Date: 20130514
  Transmission Date: 20140414
  Serious: Yes (Other)
  Sender: FDA-Public Use
  Company Number: ES-GLAXOSMITHKLINE-B0886161A

PATIENT
  Sex: Female

DRUGS (1)
  1. ALLI [Suspect]
     Indication: WEIGHT DECREASED
     Dosage: 60MG UNKNOWN
     Route: 048
     Dates: start: 2012

REACTIONS (2)
  - Intestinal prolapse [Unknown]
  - Off label use [Recovered/Resolved]
